FAERS Safety Report 4964366-6 (Version None)
Quarter: 2006Q2

REPORT INFORMATION
  Report Type: 
  Country: None (occurrence: None)
  Receive Date: 20060406
  Receipt Date: 20051231
  Transmission Date: 20061013
  Serious: Yes (Other)
  Sender: FDA-Public Use
  Company Number: 2006AP00285

PATIENT
  Age: 19723 Day
  Sex: Female
  Weight: 55 kg

DRUGS (6)
  1. ARIMIDEX [Suspect]
     Indication: BREAST CANCER
     Route: 048
     Dates: start: 20050526, end: 20051211
  2. SALAZOPYRIN [Concomitant]
     Indication: COLITIS
     Route: 048
     Dates: start: 20040101, end: 20050101
  3. SALAZOPYRIN [Concomitant]
     Route: 048
     Dates: start: 20051110, end: 20051228
  4. AFEMA [Concomitant]
  5. FARESTON [Concomitant]
  6. FURTULON [Concomitant]

REACTIONS (2)
  - GOITRE [None]
  - HYPOTHYROIDISM [None]
